FAERS Safety Report 9468397 (Version 1)
Quarter: 2013Q3

REPORT INFORMATION
  Report Type: Spontaneous
  Country: GB (occurrence: GB)
  Receive Date: 20130821
  Receipt Date: 20130821
  Transmission Date: 20140515
  Serious: Yes (Death, Hospitalization, Other)
  Sender: FDA-Public Use
  Company Number: PHHY2013GB090317

PATIENT
  Age: 70 Year
  Sex: Female

DRUGS (3)
  1. PREDNISOLONE [Suspect]
     Indication: DRUG REACTION WITH EOSINOPHILIA AND SYSTEMIC SYMPTOMS
     Dosage: 60 MG, UNK
  2. AZATHIOPRINE [Suspect]
     Indication: DIABETES MELLITUS
  3. INSULIN [Concomitant]
     Indication: DIABETES MELLITUS

REACTIONS (13)
  - Eosinophilic myocarditis [Fatal]
  - Left ventricular hypertrophy [Fatal]
  - Lymphocytic infiltration [Fatal]
  - Myocarditis [Fatal]
  - Myocardial necrosis [Fatal]
  - Hepatitis acute [Recovering/Resolving]
  - Chest pain [Fatal]
  - Electrocardiogram ST segment elevation [Fatal]
  - Shock [Unknown]
  - Cardiac arrest [Unknown]
  - Diarrhoea [Unknown]
  - Vomiting [Fatal]
  - Diabetes mellitus [Unknown]
